FAERS Safety Report 19043928 (Version 1)
Quarter: 2021Q1

REPORT INFORMATION
  Report Type: Spontaneous
  Country: US (occurrence: US)
  Receive Date: 20210323
  Receipt Date: 20210323
  Transmission Date: 20210420
  Serious: Yes (Life-Threatening, Hospitalization)
  Sender: FDA-Public Use
  Company Number: None

PATIENT
  Age: 80 Year
  Sex: Male
  Weight: 69 kg

DRUGS (1)
  1. VENALAFAXINE (VENLAFAXINE HCL 37.5 MG 24HR CAP, SA) [Suspect]
     Active Substance: VENLAFAXINE HYDROCHLORIDE
     Indication: PAIN
     Route: 048
     Dates: end: 20210223

REACTIONS (5)
  - Limb injury [None]
  - Wound [None]
  - Dialysis [None]
  - Seizure [None]
  - Metabolic encephalopathy [None]

NARRATIVE: CASE EVENT DATE: 20210224
